FAERS Safety Report 5776147-4 (Version None)
Quarter: 2008Q2

REPORT INFORMATION
  Report Type: 
  Country: None (occurrence: None)
  Receive Date: 20080613
  Receipt Date: 20080606
  Transmission Date: 20081010
  Serious: Yes (Death, Hospitalization)
  Sender: FDA-Public Use
  Company Number: 2007JP000773

PATIENT
  Age: 32 Year
  Sex: Male

DRUGS (6)
  1. PROGRAF [Suspect]
     Indication: LUNG TRANSPLANT
     Dosage: 2 MG, ORAL; 4 MG
     Route: 048
     Dates: start: 20061028
  2. METHYLPREDNISOLONE [Concomitant]
  3. MYCOPHENOLATE MOFETIL [Concomitant]
  4. CYCLOSPORINE [Concomitant]
  5. METHOTREXATE [Concomitant]
  6. PREDNISOLONE [Concomitant]

REACTIONS (10)
  - BONE MARROW TUMOUR CELL INFILTRATION [None]
  - HEPATOSPLENIC T-CELL LYMPHOMA [None]
  - MALAISE [None]
  - NO THERAPEUTIC RESPONSE [None]
  - OESOPHAGEAL CANDIDIASIS [None]
  - PSEUDOMONAS INFECTION [None]
  - PYREXIA [None]
  - STAPHYLOCOCCAL INFECTION [None]
  - TACHYCARDIA [None]
  - TRANSPLANT REJECTION [None]
